FAERS Safety Report 5469972-0 (Version None)
Quarter: 2007Q3

REPORT INFORMATION
  Report Type: 
  Country: None (occurrence: None)
  Receive Date: 20070927
  Receipt Date: 20070920
  Transmission Date: 20080115
  Serious: Yes (Hospitalization)
  Sender: FDA-Public Use
  Company Number: US-ELI_LILLY_AND_COMPANY-US200708000779

PATIENT
  Age: 71 Year
  Sex: Female
  Weight: 81.632 kg

DRUGS (11)
  1. ASPIRIN [Concomitant]
     Indication: DYSLIPIDAEMIA
     Dosage: 81 MG, 3/W
     Dates: start: 19990101
  2. CARDIZEM LA [Concomitant]
     Indication: HYPERTENSION
     Dosage: 240 MG, DAILY (1/D)
     Dates: start: 19990101
  3. DIOVAN HCT [Concomitant]
     Indication: HYPERTENSION
     Dosage: UNK D/F, DAILY (1/D)
     Dates: start: 19990101
  4. EVISTA [Concomitant]
     Indication: OSTEOPOROSIS
     Dosage: 60 MG, DAILY (1/D)
     Dates: start: 20020101
  5. ZOLOFT [Concomitant]
     Indication: ANTIDEPRESSANT THERAPY
     Dosage: 25 MG, UNKNOWN
     Dates: start: 20070101
  6. LIPITOR [Concomitant]
     Indication: TYPE 2 DIABETES MELLITUS
     Dosage: 10 MG, UNKNOWN
     Dates: start: 19990101
  7. RANITIDINE HCL [Concomitant]
     Dosage: 150 MG, UNKNOWN
     Dates: start: 20070101
  8. CALCIUM W/VITAMIN D /00944201/ [Concomitant]
     Indication: OSTEOPOROSIS
     Dosage: 600 MG, UNKNOWN
     Dates: start: 20020101
  9. BYETTA [Suspect]
     Indication: TYPE 2 DIABETES MELLITUS
     Dosage: 10 UG, 2/D
     Route: 058
     Dates: start: 20060901, end: 20070701
  10. BYETTA [Suspect]
     Dosage: 10 U, 2/D
     Route: 058
     Dates: start: 20070101
  11. METFORMIN [Concomitant]
     Dosage: UNK, UNKNOWN

REACTIONS (3)
  - HYPOGLYCAEMIA [None]
  - LIPOMA [None]
  - WEIGHT DECREASED [None]
